FAERS Safety Report 11887454 (Version 2)
Quarter: 2016Q1

REPORT INFORMATION
  Report Type: Spontaneous
  Country: US (occurrence: US)
  Receive Date: 20160105
  Receipt Date: 20160318
  Transmission Date: 20160526
  Serious: Yes (Other)
  Sender: FDA-Public Use
  Company Number: US-AMGEN-USASP2016000025

PATIENT
  Age: 62 Year
  Sex: Female

DRUGS (3)
  1. METHOTREXATE SODIUM. [Concomitant]
     Active Substance: METHOTREXATE SODIUM
     Dosage: UNK
  2. ENBREL [Suspect]
     Active Substance: ETANERCEPT
     Indication: RHEUMATOID ARTHRITIS
     Dosage: 50 MG, QWK
     Route: 058
  3. PREDNISONE. [Concomitant]
     Active Substance: PREDNISONE
     Dosage: UNK

REACTIONS (8)
  - Pain in extremity [Not Recovered/Not Resolved]
  - Depression [Unknown]
  - Gait disturbance [Not Recovered/Not Resolved]
  - Nasopharyngitis [Unknown]
  - Decreased activity [Unknown]
  - Upper respiratory tract infection [Unknown]
  - Rheumatoid arthritis [Unknown]
  - Musculoskeletal pain [Not Recovered/Not Resolved]
